FAERS Safety Report 5570094-9 (Version None)
Quarter: 2007Q4

REPORT INFORMATION
  Report Type: 
  Country: None (occurrence: None)
  Receive Date: 20071220
  Receipt Date: 20071208
  Transmission Date: 20080405
  Serious: Yes (Other)
  Sender: FDA-Public Use
  Company Number: US-PFIZER INC-2007103364

PATIENT
  Sex: Female
  Weight: 66.7 kg

DRUGS (2)
  1. LYRICA [Suspect]
     Indication: NECK PAIN
     Route: 048
  2. OXYMORPHONE HYDROCHLORIDE [Concomitant]
     Indication: PAIN
     Route: 048

REACTIONS (3)
  - OEDEMA PERIPHERAL [None]
  - PHARYNGOLARYNGEAL PAIN [None]
  - WEIGHT INCREASED [None]
